FAERS Safety Report 14110967 (Version 1)
Quarter: 2017Q4

REPORT INFORMATION
  Report Type: Spontaneous
  Country: US (occurrence: US)
  Receive Date: 20171019
  Receipt Date: 20171019
  Transmission Date: 20180321
  Serious: Yes (Other)
  Sender: FDA-Public Use
  Company Number: None

PATIENT
  Age: 37 Year
  Sex: Female
  Weight: 85.5 kg

DRUGS (1)
  1. REXALL SINUS NASAL PUMP MIST [Suspect]
     Active Substance: OXYMETAZOLINE HYDROCHLORIDE
     Indication: RESPIRATORY DISORDER
     Route: 055

REACTIONS (9)
  - Headache [None]
  - Toothache [None]
  - Eye pain [None]
  - Pain in jaw [None]
  - Ear pain [None]
  - Rhinalgia [None]
  - Product use issue [None]
  - Eye swelling [None]
  - Burning sensation [None]

NARRATIVE: CASE EVENT DATE: 20171019
